FAERS Safety Report 25212798 (Version 2)
Quarter: 2025Q2

REPORT INFORMATION
  Report Type: Spontaneous
  Country: AR (occurrence: AR)
  Receive Date: 20250418
  Receipt Date: 20250526
  Transmission Date: 20250717
  Serious: No
  Sender: ANI
  Company Number: AR-ANIPHARMA-022415

PATIENT
  Age: 17 Year
  Sex: Male

DRUGS (6)
  1. FLUVOXAMINE MALEATE [Suspect]
     Active Substance: FLUVOXAMINE MALEATE
     Indication: Obsessive-compulsive disorder
     Dates: start: 202406, end: 202408
  2. VALPROATE SODIUM [Concomitant]
     Active Substance: VALPROATE SODIUM
     Indication: Impulsive behaviour
     Dates: start: 202406
  3. FLUVOXAMINE MALEATE [Suspect]
     Active Substance: FLUVOXAMINE MALEATE
     Indication: Impulsive behaviour
     Dates: start: 202406, end: 202408
  4. FLUVOXAMINE MALEATE [Suspect]
     Active Substance: FLUVOXAMINE MALEATE
     Indication: Obsessive-compulsive disorder
     Dates: start: 202408
  5. FLUVOXAMINE MALEATE [Suspect]
     Active Substance: FLUVOXAMINE MALEATE
     Indication: Impulsive behaviour
     Dates: start: 202408
  6. VALPROATE SODIUM [Concomitant]
     Active Substance: VALPROATE SODIUM
     Indication: Aggression
     Dates: start: 202406

REACTIONS (2)
  - Off label use [Unknown]
  - Sinus bradycardia [Unknown]

NARRATIVE: CASE EVENT DATE: 20240601
